FAERS Safety Report 9186004 (Version 4)
Quarter: 2013Q2

REPORT INFORMATION
  Report Type: Report from Study
  Country: CA (occurrence: CA)
  Receive Date: 20130325
  Receipt Date: 20130627
  Transmission Date: 20140414
  Serious: Yes (Hospitalization, Disabling)
  Sender: FDA-Public Use
  Company Number: CA-ASTRAZENECA-2013SE17844

PATIENT
  Age: 24709 Day
  Sex: Female

DRUGS (9)
  1. AZD6140 [Suspect]
     Indication: CORONARY ARTERY DISEASE
     Route: 048
     Dates: start: 20121031, end: 20130312
  2. ASA [Concomitant]
     Route: 048
     Dates: end: 20130312
  3. ASA [Concomitant]
     Route: 048
     Dates: start: 20130314
  4. RAMIPRIL [Concomitant]
     Indication: HYPERTENSION
     Route: 048
  5. PANTOPRAZOLE [Concomitant]
     Indication: GASTRIC DISORDER
     Route: 048
  6. ATORVASTATIN [Concomitant]
     Indication: HYPERCHOLESTEROLAEMIA
     Route: 048
  7. PENLAC [Concomitant]
     Indication: NAIL INFECTION
     Route: 061
  8. HYDROCHLOROTHIAZIDE [Concomitant]
     Indication: HYPERTENSION
     Route: 048
  9. VENLAFAXINE [Concomitant]
     Indication: INSOMNIA
     Route: 048
     Dates: end: 20130327

REACTIONS (3)
  - Anaemia [Recovered/Resolved]
  - Syncope [Recovered/Resolved]
  - Clavicle fracture [Recovered/Resolved]
